FAERS Safety Report 8200976-0 (Version None)
Quarter: 2012Q1

REPORT INFORMATION
  Report Type: 
  Country: None (occurrence: None)
  Receive Date: 20120312
  Receipt Date: 20111028
  Transmission Date: 20120608
  Serious: No
  Sender: FDA-Public Use
  Company Number: US-ABBOTT-11P-163-0870085-00

PATIENT
  Sex: Female

DRUGS (2)
  1. AMBIEN [Concomitant]
     Indication: INSOMNIA
  2. LUPRON DEPOT [Suspect]
     Indication: ENDOMETRIOSIS
     Dates: start: 20110805

REACTIONS (3)
  - INSOMNIA [None]
  - BLOOD GLUCOSE DECREASED [None]
  - VOMITING [None]
